FAERS Safety Report 7364940-6 (Version None)
Quarter: 2011Q1

REPORT INFORMATION
  Report Type: 
  Country: None (occurrence: None)
  Receive Date: 20110321
  Receipt Date: 20110222
  Transmission Date: 20110831
  Serious: No
  Sender: FDA-Public Use
  Company Number: US-B.I. PHARMACEUTICALS,INC./RIDGEFIELD-2011-BP-06537BP

PATIENT
  Age: 76 Year
  Sex: Male

DRUGS (10)
  1. PRINIVIL [Concomitant]
     Indication: HYPERTENSION
  2. AMILORIDE HYDROCHLORIDE [Concomitant]
     Indication: RENAL DISORDER
  3. FELODIPINE [Concomitant]
     Indication: CARDIAC DISORDER
  4. M.V.I. [Concomitant]
     Indication: PROPHYLAXIS
  5. FELODIPINE [Concomitant]
     Indication: HYPERTENSION
  6. LOPRESSOR [Concomitant]
     Indication: HYPERTENSION
  7. PRADAXA [Suspect]
     Indication: ATRIAL FIBRILLATION
     Route: 048
     Dates: start: 20110203, end: 20110221
  8. PRADAXA [Suspect]
     Route: 048
     Dates: start: 20110204, end: 20110221
  9. HYDRO-CHLOR [Concomitant]
     Indication: HYPERTENSION
  10. PRINIVIL [Concomitant]
     Indication: CARDIAC DISORDER

REACTIONS (5)
  - PRURITUS GENERALISED [None]
  - DYSPEPSIA [None]
  - DIARRHOEA [None]
  - PAIN IN EXTREMITY [None]
  - OEDEMA PERIPHERAL [None]
